FAERS Safety Report 18058611 (Version 2)
Quarter: 2020Q3

REPORT INFORMATION
  Report Type: Spontaneous
  Country: US (occurrence: US)
  Receive Date: 20200723
  Receipt Date: 20200922
  Transmission Date: 20201103
  Serious: Yes (Other)
  Sender: FDA-Public Use
  Company Number: US-TEVA-2020-US-1803354

PATIENT
  Sex: Male

DRUGS (5)
  1. IBUPROFEN. [Suspect]
     Active Substance: IBUPROFEN
     Route: 065
  2. EXCEDRIN [Suspect]
     Active Substance: ACETAMINOPHEN\ASPIRIN\CAFFEINE
     Route: 065
  3. FENTANYL. [Suspect]
     Active Substance: FENTANYL
     Indication: PRODUCT USED FOR UNKNOWN INDICATION
     Route: 065
  4. OXYCODONE [Suspect]
     Active Substance: OXYCODONE
     Route: 065
  5. CYMBALTA [Suspect]
     Active Substance: DULOXETINE HYDROCHLORIDE
     Route: 065

REACTIONS (12)
  - Drug dependence [Unknown]
  - Depression [Unknown]
  - Tooth loss [Unknown]
  - Gait disturbance [Unknown]
  - Spinal operation [Unknown]
  - Balance disorder [Unknown]
  - Pain [Unknown]
  - Prescription drug used without a prescription [Unknown]
  - Loss of personal independence in daily activities [Unknown]
  - Amnesia [Unknown]
  - Impaired quality of life [Unknown]
  - Headache [Unknown]
